FAERS Safety Report 15128853 (Version 1)
Quarter: 2018Q3

REPORT INFORMATION
  Report Type: Spontaneous
  Country: AU (occurrence: AU)
  Receive Date: 20180711
  Receipt Date: 20180711
  Transmission Date: 20181010
  Serious: Yes (Other)
  Sender: FDA-Public Use
  Company Number: AU-BAXTER-2018BAX018850

PATIENT
  Age: 9 Year
  Sex: Male

DRUGS (6)
  1. SODIUM CHLORIDE (VIAFLO) 1000ML [Suspect]
     Active Substance: SODIUM CHLORIDE
     Dosage: COMPOUNDED WITH ETOPOSIDE (AS PHOSPHATE) 200 MG
     Route: 065
     Dates: start: 20180612, end: 20180619
  2. ETOPOSIDE. [Suspect]
     Active Substance: ETOPOSIDE
     Dosage: ETOPOSIDE (AS PHOSPHATE)
     Route: 065
     Dates: start: 20180612, end: 20180619
  3. SODIUM CHLORIDE (VIAFLO) 1000ML [Suspect]
     Active Substance: SODIUM CHLORIDE
     Indication: MEDICATION DILUTION
     Dosage: COMPOUNDED WITH ETOPOSIDE (AS PHOSPHATE) 140 MG
     Route: 042
     Dates: start: 20180521, end: 20180525
  4. STERILE WATER [Suspect]
     Active Substance: WATER
     Dosage: COMPOUNDED WITH ETOPOSIDE (AS PHOSPHATE) 200 MG
     Route: 065
     Dates: start: 20180612, end: 20180619
  5. ETOPOSIDE. [Suspect]
     Active Substance: ETOPOSIDE
     Indication: CHEMOTHERAPY
     Dosage: ETOPOSIDE (AS PHOSPHATE)
     Route: 042
     Dates: start: 20180521, end: 20180525
  6. STERILE WATER [Suspect]
     Active Substance: WATER
     Indication: MEDICATION DILUTION
     Dosage: COMPOUNDED WITH ETOPOSIDE (AS PHOSPHATE) 140 MG
     Route: 042
     Dates: start: 20180521, end: 20180525

REACTIONS (3)
  - Flushing [Recovered/Resolved with Sequelae]
  - Throat tightness [Recovered/Resolved with Sequelae]
  - Dyspnoea [Recovered/Resolved with Sequelae]

NARRATIVE: CASE EVENT DATE: 201805
